FAERS Safety Report 4899313-9 (Version None)
Quarter: 2006Q1

REPORT INFORMATION
  Report Type: 
  Country: None (occurrence: None)
  Receive Date: 20060131
  Receipt Date: 20060124
  Transmission Date: 20060701
  Serious: Yes (Death, Hospitalization)
  Sender: FDA-Public Use
  Company Number: HQ0800620FEB2002

PATIENT
  Age: 18 Month
  Sex: Female

DRUGS (12)
  1. CORDARONE [Suspect]
     Indication: ARRHYTHMIA
     Dosage: TOTAL INTRAVENOUS
     Route: 042
     Dates: start: 20020214, end: 20020214
  2. DOPAMINE HCL [Concomitant]
  3. EPINEPHRINE [Concomitant]
  4. CEFAZOLIN [Concomitant]
  5. RANITIDINE [Concomitant]
  6. CALCIUM GLUCONATE [Concomitant]
  7. MORPHINE [Concomitant]
  8. SODIUM BICARBONATE IN PLASTIC CONTAINER [Concomitant]
  9. CORDARONE [Concomitant]
  10. MILRINONE (MILRINONE) [Concomitant]
  11. LANATOSIDE C (LANATOSIDE C) [Concomitant]
  12. FUROSEMIDE [Concomitant]

REACTIONS (12)
  - ALANINE AMINOTRANSFERASE INCREASED [None]
  - ASPARTATE AMINOTRANSFERASE INCREASED [None]
  - BRADYCARDIA [None]
  - COAGULOPATHY [None]
  - CONDITION AGGRAVATED [None]
  - DISEASE RECURRENCE [None]
  - HEPATIC ENZYME INCREASED [None]
  - LIVER DISORDER [None]
  - MULTI-ORGAN FAILURE [None]
  - NODAL ARRHYTHMIA [None]
  - OLIGURIA [None]
  - PERITONEAL DIALYSIS [None]
